FAERS Safety Report 12876409 (Version 2)
Quarter: 2016Q4

REPORT INFORMATION
  Report Type: Spontaneous
  Country: SK (occurrence: SK)
  Receive Date: 20161024
  Receipt Date: 20161028
  Transmission Date: 20170207
  Serious: Yes (Other)
  Sender: FDA-Public Use
  Company Number: SK-PFIZER INC-2016477459

PATIENT
  Age: 69 Year
  Sex: Male

DRUGS (5)
  1. SUTENT [Suspect]
     Active Substance: SUNITINIB MALATE
     Dosage: 25 MG, 2 WEEKS TREATMENT/ 1 WEEK PAUSE
     Dates: start: 201602
  2. SUNITINIB MALATE. [Suspect]
     Active Substance: SUNITINIB MALATE
     Indication: RENAL CANCER
     Dosage: UNK
     Dates: start: 201402, end: 201408
  3. SUTENT [Suspect]
     Active Substance: SUNITINIB MALATE
     Dosage: 50 MG, 2 WEEKS TREATMENT/ 1 WEEK PAUSE
     Dates: start: 201507, end: 201601
  4. SUTENT [Suspect]
     Active Substance: SUNITINIB MALATE
     Dosage: 2 WEEKS TREATMENT/1 WEEK PAUSE
     Dates: start: 201204, end: 20130612
  5. SUTENT [Suspect]
     Active Substance: SUNITINIB MALATE
     Indication: RENAL CANCER
     Dosage: 4 WEEKS TREATMENT/2WEEKS PAUSE, CYCLE OF 6 WEEKS
     Dates: start: 20110811, end: 20120211

REACTIONS (12)
  - Hypothyroidism [Unknown]
  - Fatigue [Unknown]
  - Somnolence [Unknown]
  - Pancytopenia [Unknown]
  - Blood pressure fluctuation [Unknown]
  - Aphthous ulcer [Unknown]
  - Blood glucose decreased [Unknown]
  - Diarrhoea [Unknown]
  - Yellow skin [Unknown]
  - Weight decreased [Unknown]
  - Nausea [Unknown]
  - Alopecia [Unknown]
